FAERS Safety Report 5034433-X (Version None)
Quarter: 2006Q2

REPORT INFORMATION
  Report Type: 
  Country: None (occurrence: None)
  Receive Date: 20060626
  Receipt Date: 20060615
  Transmission Date: 20061013
  Serious: Yes (Death)
  Sender: FDA-Public Use
  Company Number: PHBS2006SE08947

PATIENT
  Age: 67 Year
  Sex: Female

DRUGS (2)
  1. VISKEN [Suspect]
  2. PROPRANOLOL [Concomitant]

REACTIONS (3)
  - CARDIAC ARREST [None]
  - COUGH [None]
  - MYOCARDIAL INFARCTION [None]
